FAERS Safety Report 8483438-5 (Version None)
Quarter: 2012Q3

REPORT INFORMATION
  Report Type: 
  Country: None (occurrence: None)
  Receive Date: 20120702
  Receipt Date: 20120628
  Transmission Date: 20120928
  Serious: Yes (Death)
  Sender: FDA-Public Use
  Company Number: PHHY2012CA049304

PATIENT
  Age: 27 Year
  Sex: Female

DRUGS (11)
  1. MIDAZOLAM [Suspect]
  2. TOPIRAMATE [Suspect]
  3. VALPROIC ACID [Suspect]
  4. MAGNESIUM SULFATE [Suspect]
  5. KETAMINE HCL [Suspect]
  6. OXCARBAZEPINE [Suspect]
  7. IMMUNE GLOBULIN NOS [Suspect]
  8. LACOSAMIDE [Suspect]
  9. CLOBAZAM [Suspect]
  10. LEVETIRACETAM [Suspect]
  11. ISOFLURANE [Suspect]

REACTIONS (1)
  - DEATH [None]
